FAERS Safety Report 25279591 (Version 2)
Quarter: 2025Q3

REPORT INFORMATION
  Report Type: Report from Study
  Country: US (occurrence: US)
  Receive Date: 20250507
  Receipt Date: 20250809
  Transmission Date: 20251020
  Serious: Yes (Other)
  Sender: ALEXION PHARMACEUTICALS
  Company Number: US-AstraZeneca-CH-00861153A

PATIENT
  Sex: Male

DRUGS (1)
  1. ACALABRUTINIB [Suspect]
     Active Substance: ACALABRUTINIB
     Indication: Chronic lymphocytic leukaemia

REACTIONS (8)
  - Dyspnoea [Unknown]
  - Oedema peripheral [Unknown]
  - Hypotension [Unknown]
  - Blister [Unknown]
  - Weight increased [Unknown]
  - Intra-abdominal fluid collection [Unknown]
  - Haemothorax [Unknown]
  - Hypotension [Unknown]
